FAERS Safety Report 17940745 (Version 2)
Quarter: 2020Q3

REPORT INFORMATION
  Report Type: Spontaneous
  Country: US (occurrence: US)
  Receive Date: 20200625
  Receipt Date: 20200706
  Transmission Date: 20201103
  Serious: Yes (Death, Other)
  Sender: FDA-Public Use
  Company Number: US-SA-2020SA161647

PATIENT

DRUGS (1)
  1. ZANTAC 75 [Suspect]
     Active Substance: RANITIDINE HYDROCHLORIDE
     Dosage: OVER 150 MG PER DAY
     Dates: start: 200101, end: 201905

REACTIONS (4)
  - Endometrial cancer metastatic [Fatal]
  - Pancreatic carcinoma [Unknown]
  - Injury [Unknown]
  - Mental impairment [Unknown]

NARRATIVE: CASE EVENT DATE: 201712
